FAERS Safety Report 9493282 (Version 2)
Quarter: 2013Q3

REPORT INFORMATION
  Report Type: Report from Study
  Country: TW (occurrence: TW)
  Receive Date: 20130902
  Receipt Date: 20130902
  Transmission Date: 20140515
  Serious: Yes (Other)
  Sender: FDA-Public Use
  Company Number: PHHO2010TW18270

PATIENT
  Age: 49 Year
  Sex: Male
  Weight: 75 kg

DRUGS (13)
  1. ALISKIREN [Suspect]
     Indication: CARDIOVASCULAR DISORDER
     Route: 048
     Dates: start: 20090508
  2. BISOPROLOL [Concomitant]
     Indication: HYPERTENSION
     Dates: start: 20080731
  3. IRBESARTAN [Concomitant]
     Indication: HYPERTENSION
     Dates: start: 20090122
  4. DIPYRIDAMOLE [Concomitant]
     Indication: DIABETIC NEPHROPATHY
     Dates: start: 20090319
  5. GLIMEPIRIDE [Concomitant]
     Indication: TYPE 2 DIABETES MELLITUS
     Dates: start: 20100726
  6. FUROSEMIDE [Concomitant]
     Indication: ANGIOEDEMA
     Dates: start: 20101025
  7. MOSAPRIDE CITRATE [Concomitant]
     Indication: ABDOMINAL DISTENSION
     Dates: start: 20101025
  8. BACLOFEN [Concomitant]
     Indication: SPINAL OSTEOARTHRITIS
     Dates: start: 20080729
  9. BACLOFEN [Concomitant]
     Indication: MYOFASCIAL PAIN SYNDROME
  10. PENTOXIFYLLINE [Concomitant]
     Indication: SPINAL OSTEOARTHRITIS
     Dates: start: 20080211
  11. PENTOXIFYLLINE [Concomitant]
     Indication: MYOFASCIAL PAIN SYNDROME
  12. CLONAZEPAM [Concomitant]
     Indication: INSOMNIA
     Dates: start: 20090602
  13. DIURETICS [Concomitant]

REACTIONS (6)
  - Renal impairment [Not Recovered/Not Resolved]
  - Lethargy [Not Recovered/Not Resolved]
  - Oedema [Not Recovered/Not Resolved]
  - Urine analysis abnormal [Not Recovered/Not Resolved]
  - Blood creatinine increased [Not Recovered/Not Resolved]
  - Concomitant disease progression [Not Recovered/Not Resolved]
